FAERS Safety Report 14658199 (Version 1)
Quarter: 2018Q1

REPORT INFORMATION
  Report Type: Spontaneous
  Country: US (occurrence: US)
  Receive Date: 20180320
  Receipt Date: 20180320
  Transmission Date: 20180509
  Serious: Yes (Other)
  Sender: FDA-Public Use
  Company Number: US-TEVA-2018-US-869906

PATIENT
  Sex: Female

DRUGS (1)
  1. QUETIAPINE FUMARATE. [Suspect]
     Active Substance: QUETIAPINE FUMARATE
     Indication: FEELING OF RELAXATION
     Dosage: 50 MILLIGRAM DAILY;
     Route: 048

REACTIONS (4)
  - Tremor [Unknown]
  - Hemiparesis [Unknown]
  - Dysphagia [Unknown]
  - Dry mouth [Unknown]
